FAERS Safety Report 6299626-2 (Version None)
Quarter: 2009Q3

REPORT INFORMATION
  Report Type: 
  Country: None (occurrence: None)
  Receive Date: 20090805
  Receipt Date: 20090805
  Transmission Date: 20100115
  Serious: Yes (Other)
  Sender: FDA-Public Use
  Company Number: None

PATIENT
  Age: 44 Month
  Sex: Male
  Weight: 18.5975 kg

DRUGS (1)
  1. SINGULAIR [Suspect]
     Indication: SEASONAL ALLERGY
     Dosage: 1 CHEWABLE TABLET DAILY PO
     Route: 048
     Dates: start: 20090622, end: 20090802

REACTIONS (8)
  - ABDOMINAL PAIN UPPER [None]
  - ABNORMAL BEHAVIOUR [None]
  - AGGRESSION [None]
  - ANGER [None]
  - DEPRESSED MOOD [None]
  - HEADACHE [None]
  - OPPOSITIONAL DEFIANT DISORDER [None]
  - SOCIAL AVOIDANT BEHAVIOUR [None]
